FAERS Safety Report 9033248 (Version 1)
Quarter: 2013Q1

REPORT INFORMATION
  Report Type: Spontaneous
  Country: US (occurrence: US)
  Receive Date: 20130128
  Receipt Date: 20130128
  Transmission Date: 20140127
  Serious: Yes (Death)
  Sender: FDA-Public Use
  Company Number: PHHY2013US007364

PATIENT
  Age: 60 Year
  Sex: Female

DRUGS (13)
  1. TIZANIDINE [Suspect]
  2. HYDROCHLOROTHIAZIDE [Suspect]
  3. AMLODIPINE [Suspect]
  4. ARIPIPRAZOLE [Suspect]
  5. OXYCODONE HYDROCHLORIDE [Suspect]
  6. FLUOXETINE [Suspect]
  7. AMITRIPTYLINE [Suspect]
  8. ZOLPIDEM [Suspect]
  9. SIMVASTATIN [Suspect]
  10. SUMATRIPTAN [Suspect]
  11. PARACETAMOL SANDOZ [Suspect]
  12. HYDROCODONE [Suspect]
  13. HYOSCYAMINE [Suspect]

REACTIONS (1)
  - Completed suicide [Fatal]
